FAERS Safety Report 4393888-4 (Version None)
Quarter: 2004Q3

REPORT INFORMATION
  Report Type: 
  Country: None (occurrence: None)
  Receive Date: 20040709
  Receipt Date: 20040624
  Transmission Date: 20050211
  Serious: Yes (Other)
  Sender: FDA-Public Use
  Company Number: PHBS2004IN08488

PATIENT
  Age: 34 Year
  Sex: Female

DRUGS (10)
  1. SIMULECT [Suspect]
     Indication: RENAL TRANSPLANT
     Dosage: 20 MG, ONCE/SINGLE
     Route: 042
  2. SANDIMMUNE [Concomitant]
  3. PREDNISOLONE [Concomitant]
  4. AZORAN [Concomitant]
  5. PANTOPRAZOLE [Concomitant]
  6. BACTRIM DS [Concomitant]
  7. LEVOFLOXACIN [Concomitant]
  8. ARKAMIN [Concomitant]
  9. DEPIN [Concomitant]
  10. ARTANE [Concomitant]

REACTIONS (4)
  - ANURIA [None]
  - GRAFT DYSFUNCTION [None]
  - NEPHRECTOMY [None]
  - URINE OUTPUT DECREASED [None]
